FAERS Safety Report 12400146 (Version 3)
Quarter: 2018Q2

REPORT INFORMATION
  Report Type: Spontaneous
  Country: FR (occurrence: FR)
  Receive Date: 20160524
  Receipt Date: 20180406
  Transmission Date: 20180711
  Serious: Yes (Hospitalization, Disabling, Congenital Anomaly)
  Sender: FDA-Public Use
  Company Number: FR-ABBVIE-16P-056-1636437-00

PATIENT
  Sex: Male

DRUGS (1)
  1. DEPAKINE CHRONO [Suspect]
     Active Substance: VALPROATE SODIUM
     Indication: MATERNAL EXPOSURE TIMING UNSPECIFIED
     Route: 064

REACTIONS (39)
  - Pharyngeal disorder [Not Recovered/Not Resolved]
  - Nasopharyngitis [Not Recovered/Not Resolved]
  - Hypoacusis [Recovering/Resolving]
  - Visual acuity reduced [Not Recovered/Not Resolved]
  - Conjunctivitis [Not Recovered/Not Resolved]
  - Gastrointestinal disorder [Not Recovered/Not Resolved]
  - Dysarthria [Not Recovered/Not Resolved]
  - Aggression [Not Recovered/Not Resolved]
  - Ear haemorrhage [Recovering/Resolving]
  - Ear infection fungal [Recovering/Resolving]
  - Abnormal behaviour [Not Recovered/Not Resolved]
  - Social avoidant behaviour [Not Recovered/Not Resolved]
  - Hypothermia [Not Recovered/Not Resolved]
  - Communication disorder [Not Recovered/Not Resolved]
  - Congenital musculoskeletal anomaly [Not Recovered/Not Resolved]
  - Ear infection [Recovering/Resolving]
  - Nasal disorder [Not Recovered/Not Resolved]
  - Nasopharyngitis [Not Recovered/Not Resolved]
  - Diarrhoea [Not Recovered/Not Resolved]
  - Clinodactyly [Not Recovered/Not Resolved]
  - Congenital anomaly [Recovering/Resolving]
  - Tympanic membrane perforation [Recovering/Resolving]
  - Bronchitis [Not Recovered/Not Resolved]
  - Rhinitis [Not Recovered/Not Resolved]
  - Pharyngitis [Not Recovered/Not Resolved]
  - Foetal exposure during pregnancy [Unknown]
  - Snoring [Not Recovered/Not Resolved]
  - Foetal anticonvulsant syndrome [Not Recovered/Not Resolved]
  - Auditory disorder [Not Recovered/Not Resolved]
  - Myopia [Not Recovered/Not Resolved]
  - Speech disorder [Not Recovered/Not Resolved]
  - Psychomotor skills impaired [Not Recovered/Not Resolved]
  - Anger [Not Recovered/Not Resolved]
  - Foot deformity [Not Recovered/Not Resolved]
  - Pain [Recovering/Resolving]
  - Dysgraphia [Not Recovered/Not Resolved]
  - Otorrhoea [Not Recovered/Not Resolved]
  - Tonsillitis [Not Recovered/Not Resolved]
  - Salmonella test positive [Not Recovered/Not Resolved]

NARRATIVE: CASE EVENT DATE: 2003
